FAERS Safety Report 19400990 (Version 1)
Quarter: 2021Q2

REPORT INFORMATION
  Report Type: Spontaneous
  Country: FR (occurrence: FR)
  Receive Date: 20210611
  Receipt Date: 20210611
  Transmission Date: 20210717
  Serious: Yes (Disabling, Other)
  Sender: FDA-Public Use
  Company Number: FR-ASTRAZENECA-2021A500990

PATIENT
  Age: 12655 Day
  Sex: Female
  Weight: 58 kg

DRUGS (1)
  1. FASENRA [Suspect]
     Active Substance: BENRALIZUMAB
     Indication: ASTHMA
     Dosage: 30.0MG UNKNOWN
     Route: 058
     Dates: start: 2020

REACTIONS (11)
  - Dyspnoea [Recovered/Resolved]
  - Pulmonary function test decreased [Unknown]
  - Basophil count increased [Recovered/Resolved]
  - Drug ineffective [Unknown]
  - Illness [Unknown]
  - Eosinophil count increased [Recovered/Resolved]
  - Asthenia [Unknown]
  - Mental disorder [Unknown]
  - General physical health deterioration [Recovered/Resolved]
  - Intentional product misuse [Unknown]
  - Sleep disorder due to a general medical condition [Recovered/Resolved]

NARRATIVE: CASE EVENT DATE: 20201231
